FAERS Safety Report 7104868-X (Version None)
Quarter: 2010Q4

REPORT INFORMATION
  Report Type: 
  Country: None (occurrence: None)
  Receive Date: 20101116
  Receipt Date: 20101111
  Transmission Date: 20110411
  Serious: Yes (Other)
  Sender: FDA-Public Use
  Company Number: DE-BRISTOL-MYERS SQUIBB COMPANY-15381700

PATIENT
  Age: 55 Year
  Sex: Female

DRUGS (2)
  1. ABILIFY [Suspect]
     Dosage: INTERRUPTED ON:JULY.RESTARTED ABILIFY WITH 2.5 MG.UPTO 15-SEP INCREASED TO 10 MG
     Dates: start: 20100401
  2. SEROQUEL [Suspect]
     Indication: SLEEP DISORDER

REACTIONS (5)
  - DYSARTHRIA [None]
  - EXTRAPYRAMIDAL DISORDER [None]
  - ISCHAEMIA [None]
  - RESTLESSNESS [None]
  - SLEEP DISORDER [None]
